FAERS Safety Report 24075566 (Version 1)
Quarter: 2024Q3

REPORT INFORMATION
  Report Type: Spontaneous
  Country: US (occurrence: US)
  Receive Date: 20240710
  Receipt Date: 20240710
  Transmission Date: 20241016
  Serious: No
  Sender: JOHNSON AND JOHNSON
  Company Number: US-JNJFOC-20240700851

PATIENT
  Age: 54 Year
  Sex: Female

DRUGS (2)
  1. WOMENS ROGAINE [Suspect]
     Active Substance: MINOXIDIL
     Indication: Alopecia
     Dosage: ONE DROPPER A FULL DROPPER AMOUNT STARTED 1 TIME A DAY AND THEN 2 TIMES PER DAY
     Route: 061
     Dates: start: 20240405
  2. WOMENS ROGAINE [Suspect]
     Active Substance: MINOXIDIL
     Dosage: ONE DROPPER A FULL DROPPER AMOUNT STARTED 2 TIMES PER DAY
     Route: 061

REACTIONS (3)
  - Alopecia [Recovered/Resolved]
  - Inappropriate schedule of product administration [Unknown]
  - Underdose [Unknown]

NARRATIVE: CASE EVENT DATE: 20240405
